FAERS Safety Report 19636768 (Version 1)
Quarter: 2021Q3

REPORT INFORMATION
  Report Type: Spontaneous
  Country: AR (occurrence: AR)
  Receive Date: 20210729
  Receipt Date: 20210729
  Transmission Date: 20211014
  Serious: Yes (Other)
  Sender: FDA-Public Use
  Company Number: AR-PFIZER INC-2021733993

PATIENT
  Age: 48 Year
  Sex: Female

DRUGS (1)
  1. XELJANZ XR [Suspect]
     Active Substance: TOFACITINIB CITRATE
     Indication: RHEUMATOID ARTHRITIS
     Dosage: 11 MG, 1X/DAY
     Dates: start: 20190321

REACTIONS (5)
  - Urinary tract infection [Unknown]
  - Urinary incontinence [Unknown]
  - Ovarian cyst [Unknown]
  - Device related infection [Unknown]
  - Post procedural complication [Unknown]

NARRATIVE: CASE EVENT DATE: 201910
